FAERS Safety Report 25967160 (Version 1)
Quarter: 2025Q4

REPORT INFORMATION
  Report Type: Spontaneous
  Country: US (occurrence: US)
  Receive Date: 20251028
  Receipt Date: 20251028
  Transmission Date: 20260119
  Serious: Yes (Other)
  Sender: SANOFI AVENTIS
  Company Number: US-SA-2025SA316486

PATIENT
  Age: 62 Year
  Sex: Female

DRUGS (1)
  1. DUPIXENT [Suspect]
     Active Substance: DUPILUMAB
     Indication: Eosinophilic oesophagitis
     Dosage: 300 MG, QW
     Route: 058

REACTIONS (8)
  - Choking [Unknown]
  - Vomiting [Unknown]
  - Dyspnoea [Unknown]
  - Amnesia [Unknown]
  - Herpes zoster [Unknown]
  - Pruritus [Unknown]
  - Sleep disorder [Unknown]
  - Stress [Unknown]

NARRATIVE: CASE EVENT DATE: 20251001
